FAERS Safety Report 15521657 (Version 1)
Quarter: 2018Q4

REPORT INFORMATION
  Report Type: Spontaneous
  Country: US (occurrence: US)
  Receive Date: 20181012
  Receipt Date: 20181012
  Transmission Date: 20190205
  Serious: Yes (Hospitalization)
  Sender: FDA-Public Use
  Company Number: None

PATIENT
  Age: 65 Year
  Sex: Male
  Weight: 61.5 kg

DRUGS (1)
  1. VANCOMYCIN 1 GM FRESENIUS [Suspect]
     Active Substance: VANCOMYCIN
     Indication: CELLULITIS
     Route: 042
     Dates: start: 20181008, end: 20181010

REACTIONS (1)
  - Rash [None]

NARRATIVE: CASE EVENT DATE: 20181010
